FAERS Safety Report 24794204 (Version 1)
Quarter: 2024Q4

REPORT INFORMATION
  Report Type: Spontaneous
  Country: PL (occurrence: PL)
  Receive Date: 20241231
  Receipt Date: 20241231
  Transmission Date: 20250115
  Serious: Yes (Other)
  Sender: BIOVITRUM
  Company Number: PL-AstraZeneca-CH-00773870A

PATIENT
  Sex: Female
  Weight: 2 kg

DRUGS (1)
  1. SYNAGIS [Suspect]
     Active Substance: PALIVIZUMAB
     Indication: Immunisation
     Dosage: 30 MILLIGRAM, SINGLE
     Dates: start: 20241218

REACTIONS (1)
  - Seizure [Unknown]
